FAERS Safety Report 9336275 (Version 1)
Quarter: 2013Q2

REPORT INFORMATION
  Report Type: Spontaneous
  Country: JP (occurrence: JP)
  Receive Date: 20130607
  Receipt Date: 20130607
  Transmission Date: 20140414
  Serious: Yes (Other)
  Sender: FDA-Public Use
  Company Number: JP-009507513-1306JPN000252

PATIENT
  Sex: 0

DRUGS (2)
  1. ESLAX INTRAVENOUS 25MG/2.5ML [Suspect]
     Dosage: DAILY DOSAGE UNKNOWN
     Route: 042
  2. DOPAMINE HYDROCHLORIDE [Concomitant]
     Dosage: DAILY DOSE UNKNOWN
     Route: 042

REACTIONS (2)
  - Injection site necrosis [Unknown]
  - Injection site extravasation [Unknown]
